FAERS Safety Report 5107694-6 (Version None)
Quarter: 2006Q3

REPORT INFORMATION
  Report Type: 
  Country: None (occurrence: None)
  Receive Date: 20060919
  Receipt Date: 20050929
  Transmission Date: 20061208
  Serious: Yes (Death)
  Sender: FDA-Public Use
  Company Number: 200513197FR

PATIENT
  Age: 51 Year
  Sex: Male
  Weight: 65 kg

DRUGS (14)
  1. TAXOTERE [Suspect]
     Route: 042
     Dates: start: 20050921, end: 20050921
  2. CISPLATIN [Suspect]
     Route: 042
     Dates: start: 20050921, end: 20050921
  3. LAROXYL [Suspect]
     Route: 048
     Dates: end: 20050922
  4. SOLU-MEDROL [Suspect]
     Route: 042
     Dates: start: 20050921, end: 20050921
  5. ZOPHREN [Suspect]
     Route: 042
     Dates: start: 20050921, end: 20050922
  6. PARACETAMOL [Suspect]
     Route: 048
     Dates: end: 20050922
  7. SKENAN [Concomitant]
     Route: 048
     Dates: end: 20050922
  8. MORPHINE SULFATE [Concomitant]
     Route: 048
     Dates: end: 20050922
  9. MEDROL [Concomitant]
     Route: 048
     Dates: end: 20050922
  10. NEXIUM [Concomitant]
     Dates: end: 20050922
  11. LOVENOX [Concomitant]
     Route: 058
  12. FORLAX [Concomitant]
     Route: 048
     Dates: end: 20050922
  13. PRIMPERAN TAB [Concomitant]
     Dates: start: 20050919
  14. BIPROFENID [Concomitant]
     Route: 048
     Dates: start: 20050919, end: 20050922

REACTIONS (5)
  - ACUTE RESPIRATORY DISTRESS SYNDROME [None]
  - ANXIETY [None]
  - DYSPNOEA [None]
  - HYPOXIA [None]
  - PNEUMONITIS [None]
